FAERS Safety Report 4514642-6 (Version None)
Quarter: 2004Q4

REPORT INFORMATION
  Report Type: 
  Country: None (occurrence: None)
  Receive Date: 20040927
  Receipt Date: 20040317
  Transmission Date: 20050328
  Serious: Yes (Hospitalization)
  Sender: FDA-Public Use
  Company Number: UK066054

PATIENT
  Age: 51 Year
  Sex: Female
  Weight: 100 kg

DRUGS (4)
  1. NEULASTA [Suspect]
     Indication: CHEMOTHERAPY
     Dosage: 6 MG, 1 IN 1 AS NECESSARY, SC
     Route: 058
     Dates: start: 20040116
  2. CYCLOPHOSPHAMIDE [Suspect]
     Dosage: 500 MG/M2, IV
     Route: 042
     Dates: start: 20031015
  3. EPIRUBICIN [Suspect]
     Dosage: 100 MG/M2, IV
     Route: 042
     Dates: start: 20031015
  4. FLUOROURACIL [Suspect]
     Dosage: 500 MG/M2, IV
     Route: 042
     Dates: start: 20031015

REACTIONS (2)
  - FEBRILE NEUTROPENIA [None]
  - THROMBOCYTOPENIA [None]
